FAERS Safety Report 20612688 (Version 1)
Quarter: 2022Q1

REPORT INFORMATION
  Report Type: Spontaneous
  Country: US (occurrence: US)
  Receive Date: 20220318
  Receipt Date: 20220318
  Transmission Date: 20220424
  Serious: Yes (Hospitalization)
  Sender: FDA-Public Use
  Company Number: US-UPSHER-SMITH LABORATORIES, LLC-2022USL00114

PATIENT
  Age: 1 Year
  Weight: 13 kg

DRUGS (11)
  1. VIGADRONE [Suspect]
     Active Substance: VIGABATRIN
     Indication: Epilepsy
     Dosage: 250 MG, 2X/DAY
     Route: 048
  2. CLOBAZAM [Concomitant]
     Active Substance: CLOBAZAM
  3. DIASTAT [Concomitant]
     Active Substance: DIAZEPAM
     Dosage: UNK, AS NEEDED
  4. PEPCID [Concomitant]
     Active Substance: FAMOTIDINE
  5. FLOVENT HFA [Concomitant]
     Active Substance: FLUTICASONE PROPIONATE
  6. ATROVENT [Concomitant]
     Active Substance: IPRATROPIUM BROMIDE
     Route: 045
  7. LEVETIRACETAM [Concomitant]
     Active Substance: LEVETIRACETAM
  8. VITAMIN B6 [Concomitant]
     Active Substance: PYRIDOXINE HYDROCHLORIDE
  9. SINGULAIR [Concomitant]
     Active Substance: MONTELUKAST SODIUM
     Dosage: UNK
  10. FLONASE [Concomitant]
     Active Substance: FLUTICASONE PROPIONATE
     Route: 045
  11. VITAMIN D3 [Concomitant]
     Active Substance: CHOLECALCIFEROL

REACTIONS (1)
  - Pneumonia aspiration [Unknown]

NARRATIVE: CASE EVENT DATE: 20220206
